FAERS Safety Report 25082971 (Version 1)
Quarter: 2025Q1

REPORT INFORMATION
  Report Type: Spontaneous
  Country: GB (occurrence: GB)
  Receive Date: 20250317
  Receipt Date: 20250317
  Transmission Date: 20250408
  Serious: Yes (Other)
  Sender: ALEXION PHARMACEUTICALS
  Company Number: GB-MMM-Otsuka-NDE7P5H3

PATIENT
  Age: 44 Year

DRUGS (9)
  1. QUETIAPINE FUMARATE [Suspect]
     Active Substance: QUETIAPINE FUMARATE
     Indication: Product used for unknown indication
  2. ABILIFY MAINTENA [Suspect]
     Active Substance: ARIPIPRAZOLE
     Indication: Product used for unknown indication
     Route: 065
  3. ABILIFY MAINTENA [Suspect]
     Active Substance: ARIPIPRAZOLE
  4. ABILIFY [Suspect]
     Active Substance: ARIPIPRAZOLE
     Indication: Product used for unknown indication
  5. OLANZAPINE [Suspect]
     Active Substance: OLANZAPINE
     Indication: Product used for unknown indication
  6. CLOZARIL [Suspect]
     Active Substance: CLOZAPINE
     Indication: Product used for unknown indication
     Route: 065
  7. AMISULPRIDE [Suspect]
     Active Substance: AMISULPRIDE
     Indication: Product used for unknown indication
  8. AMISULPRIDE [Suspect]
     Active Substance: AMISULPRIDE
  9. DIAZEPAM [Concomitant]
     Active Substance: DIAZEPAM
     Indication: Product used for unknown indication

REACTIONS (26)
  - Petit mal epilepsy [Not Recovered/Not Resolved]
  - Retrograde ejaculation [Unknown]
  - Loss of consciousness [Unknown]
  - Hallucination, auditory [Not Recovered/Not Resolved]
  - Erectile dysfunction [Unknown]
  - Testicular pain [Unknown]
  - Testicular atrophy [Not Recovered/Not Resolved]
  - Sexual life impairment [Not Recovered/Not Resolved]
  - Ejaculation failure [Not Recovered/Not Resolved]
  - Hypoacusis [Not Recovered/Not Resolved]
  - Excessive sexual fantasies [Unknown]
  - Stress [Unknown]
  - Semen volume decreased [Unknown]
  - Skin exfoliation [Unknown]
  - Sexual dysfunction [Not Recovered/Not Resolved]
  - Amnesia [Unknown]
  - Dysuria [Unknown]
  - Mental disorder [Unknown]
  - Malaise [Unknown]
  - Libido decreased [Unknown]
  - Weight increased [Unknown]
  - Insomnia [Not Recovered/Not Resolved]
  - Constipation [Unknown]
  - Headache [Unknown]
  - Alopecia [Unknown]
  - Hypertension [Unknown]
